FAERS Safety Report 15315767 (Version 1)
Quarter: 2018Q3

REPORT INFORMATION
  Report Type: Spontaneous
  Country: US (occurrence: US)
  Receive Date: 20180815
  Receipt Date: 20180815
  Transmission Date: 20181010
  Serious: Yes (Other)
  Sender: FDA-Public Use
  Company Number: None

PATIENT
  Age: 52 Year
  Sex: Female

DRUGS (1)
  1. CIMZIA [Suspect]
     Active Substance: CERTOLIZUMAB PEGOL
     Dosage: ?          OTHER FREQUENCY:TWICE MONTHLY;?
     Route: 058
     Dates: start: 20180319, end: 20180517

REACTIONS (1)
  - Rash [None]

NARRATIVE: CASE EVENT DATE: 20180517
